FAERS Safety Report 14480940 (Version 2)
Quarter: 2018Q1

REPORT INFORMATION
  Report Type: Spontaneous
  Country: FR (occurrence: FR)
  Receive Date: 20180202
  Receipt Date: 20180222
  Transmission Date: 20180509
  Serious: Yes (Hospitalization)
  Sender: FDA-Public Use
  Company Number: FR-BAXTER-2018BAX003582

PATIENT
  Age: 40 Year
  Sex: Male

DRUGS (3)
  1. HOLOXAN 2000 MG, POUDRE POUR USAGE PARENT?RAL [Suspect]
     Active Substance: IFOSFAMIDE
     Indication: TESTICULAR CANCER METASTATIC
     Route: 042
     Dates: end: 20150907
  2. BLEOMYCIN [Suspect]
     Active Substance: BLEOMYCIN SULFATE
     Indication: TESTICULAR CANCER METASTATIC
     Route: 042
     Dates: end: 20150919
  3. CISPLATIN. [Suspect]
     Active Substance: CISPLATIN
     Indication: TESTICULAR CANCER METASTATIC
     Route: 042
     Dates: end: 20150919

REACTIONS (3)
  - Thrombotic microangiopathy [Recovering/Resolving]
  - Renal tubular disorder [Recovering/Resolving]
  - Mucosal inflammation [Recovering/Resolving]

NARRATIVE: CASE EVENT DATE: 201509
